FAERS Safety Report 20020780 (Version 1)
Quarter: 2021Q4

REPORT INFORMATION
  Report Type: Spontaneous
  Country: FR (occurrence: FR)
  Receive Date: 20211101
  Receipt Date: 20211101
  Transmission Date: 20220303
  Serious: Yes (Hospitalization)
  Sender: FDA-Public Use
  Company Number: None

PATIENT
  Age: 47 Year
  Sex: Male
  Weight: 72 kg

DRUGS (3)
  1. ARTEMETHER\LUMEFANTRINE [Suspect]
     Active Substance: ARTEMETHER\LUMEFANTRINE
     Indication: Plasmodium falciparum infection
     Dosage: 4 DF, Q12H
     Route: 048
     Dates: start: 20211012, end: 20211014
  2. ARTESUNATE [Suspect]
     Active Substance: ARTESUNATE
     Indication: Plasmodium falciparum infection
     Dosage: 2.4 MG/KG, Q12H
     Route: 041
     Dates: start: 20211010, end: 20211011
  3. METHADONE [Concomitant]
     Active Substance: METHADONE HYDROCHLORIDE
     Indication: Drug withdrawal maintenance therapy
     Dosage: 20 MG, QD
     Route: 048

REACTIONS (1)
  - Encephalopathy [Recovering/Resolving]

NARRATIVE: CASE EVENT DATE: 20211013
